FAERS Safety Report 9623207 (Version 3)
Quarter: 2014Q1

REPORT INFORMATION
  Report Type: Spontaneous
  Country: US (occurrence: None)
  Receive Date: 20131010
  Receipt Date: 20140206
  Transmission Date: 20141002
  Serious: Yes (Hospitalization)
  Sender: FDA-Public Use
  Company Number: 2013MPI00583

PATIENT
  Age: 64 Year
  Sex: Male
  Weight: 106 kg

DRUGS (5)
  1. BRENTUXIMAB VEDOTIN [Suspect]
     Indication: HODGKIN^S DISEASE
     Route: 042
     Dates: start: 20130726, end: 20130913
  2. VINBLASTINE [Suspect]
     Indication: HODGKIN^S DISEASE
     Route: 042
     Dates: start: 20130726, end: 20130913
  3. DOXORUBICIN [Suspect]
     Indication: HODGKIN^S DISEASE
     Route: 042
     Dates: start: 20130726, end: 20130913
  4. DACARBAZINE [Suspect]
     Indication: HODGKIN^S DISEASE
     Route: 042
     Dates: start: 20130726, end: 20130913
  5. LOVENOX [Concomitant]

REACTIONS (24)
  - Febrile neutropenia [None]
  - Mental status changes [None]
  - Nausea [None]
  - Vomiting [None]
  - Dyspnoea [None]
  - Memory impairment [None]
  - Cough [None]
  - Urine output decreased [None]
  - Chromaturia [None]
  - Urine odour abnormal [None]
  - Heart rate increased [None]
  - Cerumen impaction [None]
  - Haemoglobin decreased [None]
  - Blood bicarbonate decreased [None]
  - Tachycardia [None]
  - Hypotension [None]
  - Neck pain [None]
  - Oropharyngeal pain [None]
  - Laryngeal oedema [None]
  - Reflux laryngitis [None]
  - Mucosal inflammation [None]
  - Diarrhoea [None]
  - Blood urine present [None]
  - Bacterial test positive [None]
